FAERS Safety Report 8553216-7 (Version None)
Quarter: 2012Q3

REPORT INFORMATION
  Report Type: 
  Country: None (occurrence: None)
  Receive Date: 20120725
  Receipt Date: 20120725
  Transmission Date: 20120928
  Serious: Yes (Other)
  Sender: FDA-Public Use
  Company Number: None

PATIENT
  Age: 61 Year
  Sex: Female

DRUGS (1)
  1. HUMIRA [Suspect]
     Indication: PSORIATIC ARTHROPATHY
     Dosage: 40 MG SQ Q O WEEK
     Route: 058
     Dates: start: 20120501, end: 20120701

REACTIONS (3)
  - TREATMENT FAILURE [None]
  - INFLUENZA LIKE ILLNESS [None]
  - ADMINISTRATION SITE REACTION [None]
